FAERS Safety Report 11835087 (Version 2)
Quarter: 2016Q2

REPORT INFORMATION
  Report Type: Spontaneous
  Country: US (occurrence: US)
  Receive Date: 20151215
  Receipt Date: 20160411
  Transmission Date: 20160815
  Serious: Yes (Disabling)
  Sender: FDA-Public Use
  Company Number: US-009507513-1512USA007535

PATIENT
  Age: 21 Year
  Sex: Female
  Weight: 103.4 kg

DRUGS (6)
  1. PAROXETINE. [Concomitant]
     Active Substance: PAROXETINE
     Dosage: TOTAL DAILY DOSE: 40 MG
     Route: 048
     Dates: start: 2014
  2. FLOVENT [Concomitant]
     Active Substance: FLUTICASONE PROPIONATE
     Dosage: ROUTE: REPORTED AS MH
     Dates: start: 2013
  3. SINGULAIR [Concomitant]
     Active Substance: MONTELUKAST SODIUM
     Dosage: TOTAL DAILY DOSE: 10MG
     Route: 048
     Dates: start: 2013
  4. JANUVIA [Suspect]
     Active Substance: SITAGLIPTIN PHOSPHATE
     Indication: TYPE 2 DIABETES MELLITUS
     Dosage: TOTAL DAILY DOSE: 50MG
     Route: 048
     Dates: start: 20130719, end: 20151125
  5. PROVENTIL [Concomitant]
     Active Substance: ALBUTEROL
     Dosage: ROUTE: REPORTED AS MH
     Dates: start: 2013
  6. PROTONIX [Concomitant]
     Active Substance: PANTOPRAZOLE SODIUM
     Dosage: TOTAL DAILY DOSE: 40 MG
     Route: 048
     Dates: start: 2013

REACTIONS (2)
  - Arthralgia [Recovered/Resolved]
  - Myalgia [Recovered/Resolved]

NARRATIVE: CASE EVENT DATE: 20151016
